FAERS Safety Report 4353920-0 (Version None)
Quarter: 2004Q2

REPORT INFORMATION
  Report Type: 
  Country: None (occurrence: None)
  Receive Date: 20040506
  Receipt Date: 20040112
  Transmission Date: 20050107
  Serious: No
  Sender: FDA-Public Use
  Company Number: US-GLAXOSMITHKLINE-A0492583A

PATIENT
  Sex: Male

DRUGS (6)
  1. AMOXICILLIN [Suspect]
     Indication: ILL-DEFINED DISORDER
     Route: 065
  2. PENICILLIN [Concomitant]
  3. LEVAQUIN [Concomitant]
  4. MORPHINE [Concomitant]
  5. DILAUDID [Concomitant]
  6. VICODIN [Concomitant]

REACTIONS (1)
  - DRUG SCREEN FALSE POSITIVE [None]
